FAERS Safety Report 8363210-7 (Version None)
Quarter: 2012Q2

REPORT INFORMATION
  Report Type: 
  Country: None (occurrence: None)
  Receive Date: 20120516
  Receipt Date: 20120510
  Transmission Date: 20120825
  Serious: Yes (Hospitalization, Other)
  Sender: FDA-Public Use
  Company Number: ES-PFIZER INC-2012111563

PATIENT
  Age: 34 Year
  Sex: Male
  Weight: 50 kg

DRUGS (4)
  1. CLONAZEPAM [Concomitant]
     Dosage: 1.5 MG, 1X/DAY
     Route: 048
  2. LYRICA [Suspect]
     Indication: ANXIETY
     Dosage: 150 MG, 1X/DAY
     Route: 048
     Dates: start: 20110124, end: 20110212
  3. ESCITALOPRAM [Suspect]
     Indication: ANTIDEPRESSANT THERAPY
     Dosage: 10 MG, 1X/DAY
     Route: 048
     Dates: start: 20110124, end: 20110213
  4. FLUOXETINE [Concomitant]
     Dosage: 20 MG, 1X/DAY

REACTIONS (2)
  - TRANSAMINASES INCREASED [None]
  - THROMBOCYTOPENIA [None]
